FAERS Safety Report 4446513-8 (Version None)
Quarter: 2004Q3

REPORT INFORMATION
  Report Type: 
  Country: None (occurrence: None)
  Receive Date: 20040908
  Receipt Date: 20040827
  Transmission Date: 20050211
  Serious: Yes (Death, Hospitalization)
  Sender: FDA-Public Use
  Company Number: 200412565GDS

PATIENT
  Age: 81 Year
  Sex: Male

DRUGS (1)
  1. ASPIRIN [Suspect]
     Dosage: 100 MG, QD, ORAL
     Route: 048
     Dates: end: 20040801

REACTIONS (2)
  - SUBDURAL HAEMORRHAGE [None]
  - TRAUMATIC INTRACRANIAL HAEMORRHAGE [None]
